FAERS Safety Report 4962752-1 (Version None)
Quarter: 2006Q2

REPORT INFORMATION
  Report Type: 
  Country: None (occurrence: None)
  Receive Date: 20060404
  Receipt Date: 20050930
  Transmission Date: 20061013
  Serious: Yes (Hospitalization, Other)
  Sender: FDA-Public Use
  Company Number: US-MERCK-0510USA02132

PATIENT
  Age: 50 Year
  Sex: Male
  Weight: 109 kg

DRUGS (1)
  1. VIOXX [Suspect]
     Indication: PAIN IN EXTREMITY
     Route: 048
     Dates: start: 20001101, end: 20040901

REACTIONS (15)
  - ANGINA PECTORIS [None]
  - ANGINA UNSTABLE [None]
  - AORTIC VALVE INCOMPETENCE [None]
  - BACK INJURY [None]
  - CHEST PAIN [None]
  - CONCUSSION [None]
  - CORONARY ARTERY DISEASE [None]
  - GASTRIC HAEMORRHAGE [None]
  - GASTROINTESTINAL PAIN [None]
  - HYPERHIDROSIS [None]
  - MITRAL VALVE INCOMPETENCE [None]
  - MYOCARDIAL INFARCTION [None]
  - SYNCOPE [None]
  - VENTRICULAR HYPERTROPHY [None]
  - VERTIGO [None]
